FAERS Safety Report 7547650-1 (Version None)
Quarter: 2011Q2

REPORT INFORMATION
  Report Type: 
  Country: None (occurrence: None)
  Receive Date: 20110614
  Receipt Date: 20110607
  Transmission Date: 20111010
  Serious: Yes (Hospitalization, Disabling, Other)
  Sender: FDA-Public Use
  Company Number: US-MERCK-0903USA04209

PATIENT
  Age: 54 Year
  Sex: Female
  Weight: 46 kg

DRUGS (5)
  1. CIPROFLOXACIN [Concomitant]
     Route: 065
  2. FOSAMAX [Suspect]
     Indication: OSTEOPOROSIS
     Route: 048
     Dates: start: 20020102, end: 20090101
  3. ACTONEL [Suspect]
     Route: 065
  4. METOPROLOL [Concomitant]
     Route: 065
  5. FOSAMAX [Suspect]
     Indication: OSTEOPENIA
     Route: 048
     Dates: start: 20020102, end: 20090101

REACTIONS (26)
  - FISTULA DISCHARGE [None]
  - ORAL TORUS [None]
  - GINGIVAL DISORDER [None]
  - FATIGUE [None]
  - SOFT TISSUE DISORDER [None]
  - ANAEMIA [None]
  - ORAL INFECTION [None]
  - WEIGHT DECREASED [None]
  - VISUAL IMPAIRMENT [None]
  - IMPAIRED HEALING [None]
  - TOOTH ABSCESS [None]
  - CHRONIC OBSTRUCTIVE PULMONARY DISEASE [None]
  - CELLULITIS [None]
  - BONE NEOPLASM MALIGNANT [None]
  - PURULENT DISCHARGE [None]
  - DENTAL CARIES [None]
  - INFECTION [None]
  - DYSGEUSIA [None]
  - EXOSTOSIS [None]
  - OSTEONECROSIS OF JAW [None]
  - JAW FRACTURE [None]
  - ORAL CAVITY FISTULA [None]
  - OSTEOMYELITIS [None]
  - ERYTHEMA [None]
  - SKIN INDURATION [None]
  - ABSCESS ORAL [None]
